FAERS Safety Report 25604928 (Version 2)
Quarter: 2025Q3

REPORT INFORMATION
  Report Type: Spontaneous
  Country: US (occurrence: US)
  Receive Date: 20250725
  Receipt Date: 20250825
  Transmission Date: 20251020
  Serious: No
  Sender: ROCHE
  Company Number: US-ROCHE-10000341002

PATIENT
  Sex: Female

DRUGS (20)
  1. XOLAIR PFS [Suspect]
     Active Substance: OMALIZUMAB
     Indication: Migraine without aura
     Route: 058
     Dates: start: 202004
  2. XOLAIR PFS [Suspect]
     Active Substance: OMALIZUMAB
     Indication: Idiopathic urticaria
  3. ALBUTEROL SULFATE [Concomitant]
     Active Substance: ALBUTEROL SULFATE
  4. ALBUTEROL SULFATE [Concomitant]
     Active Substance: ALBUTEROL SULFATE
  5. BOTOX [Concomitant]
     Active Substance: ONABOTULINUMTOXINA
  6. FLUTICASONE [Concomitant]
     Active Substance: FLUTICASONE
  7. IPRATROPIUM [Concomitant]
     Active Substance: IPRATROPIUM
  8. LAMOTRIGINE [Concomitant]
     Active Substance: LAMOTRIGINE
  9. METHOCARBAMOL [Concomitant]
     Active Substance: METHOCARBAMOL
  10. MONTELUKAST [Concomitant]
     Active Substance: MONTELUKAST
  11. ZEPBOUND [Concomitant]
     Active Substance: TIRZEPATIDE
  12. QULIPTA [Concomitant]
     Active Substance: ATOGEPANT
  13. AZELASTINE [Concomitant]
     Active Substance: AZELASTINE
  14. ROSUVASTATIN [Concomitant]
     Active Substance: ROSUVASTATIN
  15. SYNTHROID [Concomitant]
     Active Substance: LEVOTHYROXINE SODIUM
  16. TIZANIDINE [Concomitant]
     Active Substance: TIZANIDINE
  17. TRAZODONE [Concomitant]
     Active Substance: TRAZODONE HYDROCHLORIDE
  18. TRIAMTERENE [Concomitant]
     Active Substance: TRIAMTERENE
  19. VALACYCLOVIR [Concomitant]
     Active Substance: VALACYCLOVIR HYDROCHLORIDE
  20. HYDROCHLOROTHIAZIDE [Concomitant]
     Active Substance: HYDROCHLOROTHIAZIDE

REACTIONS (3)
  - Erythema [Unknown]
  - Pruritus [Unknown]
  - Skin burning sensation [Unknown]
